FAERS Safety Report 8803261 (Version 2)
Quarter: 2012Q4

REPORT INFORMATION
  Report Type: 
  Country: US (occurrence: US)
  Receive Date: 20120924
  Receipt Date: 20120928
  Transmission Date: 20130627
  Serious: Yes (Death)
  Sender: FDA-Public Use
  Company Number: PHEH2012US018333

PATIENT
  Age: 50 Year
  Sex: Female
  Weight: 69.3 kg

DRUGS (1)
  1. EXJADE [Suspect]
     Indication: MYELODYSPLASTIC SYNDROME
     Dosage: 2000 mg, QD
     Route: 048
     Dates: start: 20120329, end: 20120612

REACTIONS (1)
  - Sepsis [Fatal]
